FAERS Safety Report 7110116-7 (Version None)
Quarter: 2010Q4

REPORT INFORMATION
  Report Type: 
  Country: None (occurrence: None)
  Receive Date: 20101118
  Receipt Date: 20101115
  Transmission Date: 20110411
  Serious: Yes (Life-Threatening, Hospitalization, Other)
  Sender: FDA-Public Use
  Company Number: PHFR2010IE01406

PATIENT
  Sex: Male

DRUGS (3)
  1. CLOZARIL [Suspect]
     Dosage: 350 MG, QD
     Route: 048
     Dates: start: 20020121
  2. CLOZARIL [Suspect]
     Dosage: OVERDOSE (UNSPECIFIED)
     Route: 048
  3. CLONAZEPAM [Suspect]
     Dosage: OVERDOSE
     Dates: start: 20100722

REACTIONS (3)
  - DEPRESSION [None]
  - DRUG DOSE OMISSION [None]
  - OVERDOSE [None]
